FAERS Safety Report 7900732-4 (Version None)
Quarter: 2011Q4

REPORT INFORMATION
  Report Type: 
  Country: None (occurrence: None)
  Receive Date: 20111108
  Receipt Date: 20111025
  Transmission Date: 20120403
  Serious: Yes (Other)
  Sender: FDA-Public Use
  Company Number: CA-ELI_LILLY_AND_COMPANY-CA201106005940

PATIENT
  Age: 65 Year
  Sex: Female

DRUGS (10)
  1. ASPIRIN [Concomitant]
  2. ESTROGENIC SUBSTANCE [Concomitant]
  3. PRILOSEC [Concomitant]
  4. DOCUSATE SODIUM [Concomitant]
  5. DIGESTIVE ENZYMES [Concomitant]
  6. PAXIL [Concomitant]
  7. FENTANYL [Concomitant]
  8. LAX-A-DAY [Concomitant]
  9. VITAMIN D [Concomitant]
  10. FORTEO [Suspect]
     Indication: OSTEOPOROSIS
     Dosage: 20 UG, QD
     Route: 058
     Dates: start: 20101108

REACTIONS (5)
  - FATIGUE [None]
  - BLOOD IRON DECREASED [None]
  - AMNESIA [None]
  - DIZZINESS [None]
  - EYE DISORDER [None]
